FAERS Safety Report 16724207 (Version 1)
Quarter: 2019Q3

REPORT INFORMATION
  Report Type: Spontaneous
  Country: CN (occurrence: CN)
  Receive Date: 20190821
  Receipt Date: 20190821
  Transmission Date: 20191005
  Serious: Yes (Hospitalization)
  Sender: FDA-Public Use
  Company Number: CN-PFIZER INC-2019351397

PATIENT
  Age: 3 Year
  Sex: Female
  Weight: 24 kg

DRUGS (1)
  1. SOLU-MEDROL [Suspect]
     Active Substance: METHYLPREDNISOLONE SODIUM SUCCINATE
     Indication: IMMUNOSUPPRESSION
     Dosage: 35 MG, 1X/DAY
     Route: 040
     Dates: start: 20190812, end: 20190812

REACTIONS (4)
  - Rash [Recovering/Resolving]
  - Vomiting [Recovering/Resolving]
  - Pruritus [Unknown]
  - Drug hypersensitivity [Unknown]

NARRATIVE: CASE EVENT DATE: 20190812
